FAERS Safety Report 12821278 (Version 1)
Quarter: 2016Q4

REPORT INFORMATION
  Report Type: Spontaneous
  Country: US (occurrence: US)
  Receive Date: 20161006
  Receipt Date: 20161006
  Transmission Date: 20170207
  Serious: Yes (Other)
  Sender: FDA-Public Use
  Company Number: US-SAOL THERAPEUTICS-2016SAO00328

PATIENT
  Age: 54 Year
  Sex: Male
  Weight: 100.23 kg

DRUGS (13)
  1. METOPROLOL. [Concomitant]
     Active Substance: METOPROLOL
  2. ATIVAN [Concomitant]
     Active Substance: LORAZEPAM
  3. BACLOFEN. [Suspect]
     Active Substance: BACLOFEN
     Indication: POST LAMINECTOMY SYNDROME
     Dosage: 12 ?G, \DAY
     Route: 037
     Dates: start: 20160714
  4. PREDNISONE. [Concomitant]
     Active Substance: PREDNISONE
     Dosage: 50 MG, QOD
  5. BACLOFEN. [Suspect]
     Active Substance: BACLOFEN
     Indication: SPINAL PAIN
  6. LISINOPRIL. [Concomitant]
     Active Substance: LISINOPRIL
  7. SERTRALINE HYDROCHLORIDE. [Concomitant]
     Active Substance: SERTRALINE HYDROCHLORIDE
  8. HYDROMORPHONE [Suspect]
     Active Substance: HYDROMORPHONE
     Dosage: 13.95 MG, \DAY
     Route: 037
  9. METHOTREXATE. [Concomitant]
     Active Substance: METHOTREXATE
  10. SIMVASTATIN. [Concomitant]
     Active Substance: SIMVASTATIN
  11. CLONIDINE. [Suspect]
     Active Substance: CLONIDINE
     Dosage: 46.38 ?G, \DAY
     Route: 037
  12. CYMBALTA [Concomitant]
     Active Substance: DULOXETINE HYDROCHLORIDE
  13. OXYBUTYNIN [Concomitant]
     Active Substance: OXYBUTYNIN
     Dosage: UNK, 4X/DAY

REACTIONS (5)
  - Sensory disturbance [Unknown]
  - Pain [Not Recovered/Not Resolved]
  - Off label use [Unknown]
  - Muscle spasms [Not Recovered/Not Resolved]
  - Device computer issue [Unknown]

NARRATIVE: CASE EVENT DATE: 20160714
